FAERS Safety Report 10363635 (Version 1)
Quarter: 2014Q3

REPORT INFORMATION
  Report Type: Spontaneous
  Country: GB (occurrence: None)
  Receive Date: 20140731
  Receipt Date: 20140731
  Transmission Date: 20150326
  Serious: Yes (Death, Other)
  Sender: FDA-Public Use
  Company Number: 2014EDG00008

PATIENT
  Age: 17 Year
  Sex: Male

DRUGS (3)
  1. ALCOHOL. [Suspect]
     Active Substance: ALCOHOL
  2. FLUOXETINE [Suspect]
     Active Substance: FLUOXETINE\FLUOXETINE HYDROCHLORIDE
     Dosage: 20 MG, UNK, UNKNOWN
  3. PARAMAX [Suspect]
     Active Substance: ACETAMINOPHEN
     Dosage: UNK, 1X/DAY

REACTIONS (11)
  - Amnesia [None]
  - Akathisia [None]
  - Emotional distress [None]
  - Drug tolerance increased [None]
  - Agitation [None]
  - Aggression [None]
  - Self esteem inflated [None]
  - Nightmare [None]
  - Completed suicide [None]
  - Alcohol abuse [None]
  - Confusional state [None]
